FAERS Safety Report 4474770-0 (Version None)
Quarter: 2004Q4

REPORT INFORMATION
  Report Type: 
  Country: None (occurrence: None)
  Receive Date: 20041012
  Receipt Date: 20040928
  Transmission Date: 20050328
  Serious: Yes (Hospitalization)
  Sender: FDA-Public Use
  Company Number: 04NO000005

PATIENT
  Age: 59 Year
  Sex: Female

DRUGS (6)
  1. LITHIUM CARBONATE [Suspect]
     Indication: BIPOLAR DISORDER
     Dates: start: 19830101, end: 19890101
  2. LITHIUM CARBONATE [Suspect]
     Indication: BIPOLAR DISORDER
     Dates: start: 19890101, end: 19980101
  3. LITHIUM CARBONATE [Suspect]
     Indication: BIPOLAR DISORDER
     Dates: start: 20000101
  4. THYROXINE SODIUM (LEVOTHYROXINE SODIUM) [Concomitant]
  5. VENLAFAXINE (VENLAFAXINE) [Concomitant]
  6. OLANZAPINE [Concomitant]

REACTIONS (14)
  - CATATONIA [None]
  - DELUSION [None]
  - DEPRESSION [None]
  - HYPERCALCAEMIA [None]
  - HYPERPARATHYROIDISM [None]
  - HYPOTHYROIDISM [None]
  - MANIA [None]
  - MARKEDLY REDUCED DIETARY INTAKE [None]
  - PARATHYROID TUMOUR BENIGN [None]
  - POLYDIPSIA [None]
  - POLYURIA [None]
  - PSYCHOTIC DISORDER [None]
  - STUPOR [None]
  - TREATMENT NONCOMPLIANCE [None]
